FAERS Safety Report 9851857 (Version 2)
Quarter: 2014Q1

REPORT INFORMATION
  Report Type: Report from Study
  Country: BR (occurrence: BR)
  Receive Date: 20140129
  Receipt Date: 20140129
  Transmission Date: 20141002
  Serious: Yes (Hospitalization, Other)
  Sender: FDA-Public Use
  Company Number: BR-ABBVIE-14P-020-1187892-00

PATIENT
  Age: 18 Year
  Sex: Female
  Weight: 48 kg

DRUGS (5)
  1. HUMIRA [Suspect]
     Indication: CROHN^S DISEASE
     Route: 058
     Dates: start: 20130614, end: 20131107
  2. MESACOL MMX [Concomitant]
     Indication: CROHN^S DISEASE
     Route: 048
  3. SIMETICONE [Concomitant]
     Indication: CROHN^S DISEASE
     Route: 048
  4. LISADOR [Concomitant]
     Indication: PAIN
  5. LEVONORGESTREL / ETHINYLESTRADIOL (CICLO 21) [Concomitant]
     Indication: CONTRACEPTION
     Dosage: CONTINUOUS USE WITHOUT INTERVALS
     Route: 048
     Dates: start: 2009

REACTIONS (8)
  - Anal fistula [Recovered/Resolved]
  - Abscess [Recovered/Resolved]
  - Viral infection [Unknown]
  - Dyspnoea [Recovered/Resolved]
  - Inflammation [Unknown]
  - Vasculitis [Unknown]
  - Bacterial infection [Unknown]
  - Abscess [Recovered/Resolved]
